FAERS Safety Report 23140686 (Version 2)
Quarter: 2023Q4

REPORT INFORMATION
  Report Type: Spontaneous
  Country: US (occurrence: US)
  Receive Date: 20231103
  Receipt Date: 20231103
  Transmission Date: 20240109
  Serious: Yes (Other)
  Sender: FDA-Public Use
  Company Number: US-JNJFOC-20231063740

PATIENT
  Sex: Female

DRUGS (2)
  1. XARELTO [Suspect]
     Active Substance: RIVAROXABAN
     Indication: Anticoagulant therapy
     Route: 048
  2. AMIODARONE [Concomitant]
     Active Substance: AMIODARONE
     Indication: Palpitations

REACTIONS (6)
  - Haemorrhage subcutaneous [Not Recovered/Not Resolved]
  - Haematemesis [Recovered/Resolved]
  - Tooth extraction [Unknown]
  - Contusion [Not Recovered/Not Resolved]
  - Treatment noncompliance [Unknown]
  - Rash pruritic [Not Recovered/Not Resolved]
